FAERS Safety Report 19082207 (Version 1)
Quarter: 2021Q2

REPORT INFORMATION
  Report Type: Other
  Country: RU (occurrence: RU)
  Receive Date: 20210401
  Receipt Date: 20210401
  Transmission Date: 20210717
  Serious: Yes (Hospitalization, Other)
  Sender: FDA-Public Use
  Company Number: RU-ASPEN-GLO2021RU001848

PATIENT

DRUGS (6)
  1. OMEPRAZOLE. [Concomitant]
     Active Substance: OMEPRAZOLE
     Indication: GASTRITIS
     Dosage: 20 MG, BID
     Route: 065
     Dates: start: 20200109, end: 20200121
  2. PENTOXYPHYLLINUM [Concomitant]
     Indication: PRODUCT USED FOR UNKNOWN INDICATION
     Dosage: 100 MG, QD
     Route: 041
     Dates: start: 20200113, end: 20200121
  3. MYLERAN [Suspect]
     Active Substance: BUSULFAN
     Indication: CHRONIC MYELOID LEUKAEMIA
     Dosage: 2 MG, QD
     Route: 048
     Dates: start: 1999, end: 20200117
  4. FLUCONAZOLE. [Concomitant]
     Active Substance: FLUCONAZOLE
     Indication: OESOPHAGEAL CANDIDIASIS
     Dosage: 150 MG, QD
     Route: 065
     Dates: start: 20200119, end: 20200121
  5. HEPTRAL [Concomitant]
     Active Substance: ADEMETIONINE
     Indication: DRUG-INDUCED LIVER INJURY
     Dosage: 400 MG, BID
     Route: 042
     Dates: start: 20200116, end: 20200121
  6. CREON [Concomitant]
     Active Substance: PANCRELIPASE AMYLASE\PANCRELIPASE LIPASE\PANCRELIPASE PROTEASE
     Indication: PRODUCT USED FOR UNKNOWN INDICATION
     Dosage: 300 MG (25000 U BID)
     Route: 065
     Dates: start: 20200109, end: 20200121

REACTIONS (1)
  - Drug-induced liver injury [Recovering/Resolving]

NARRATIVE: CASE EVENT DATE: 20200102
